FAERS Safety Report 4475768-9 (Version None)
Quarter: 2004Q4

REPORT INFORMATION
  Report Type: 
  Country: None (occurrence: None)
  Receive Date: 20041015
  Receipt Date: 20041007
  Transmission Date: 20050328
  Serious: Yes (Disabling)
  Sender: FDA-Public Use
  Company Number: 81007-2004

PATIENT
  Age: 56 Year
  Sex: Male

DRUGS (7)
  1. REQUIP [Suspect]
     Indication: DRUG USE FOR UNKNOWN INDICATION
     Route: 048
  2. SODIUM OXYBATE [Suspect]
     Indication: NARCOLEPSY
     Route: 048
     Dates: end: 20040601
  3. PROVIGIL [Concomitant]
  4. MULTI-VITAMIN [Concomitant]
  5. VITAMINE E [Concomitant]
  6. STOOL SOFTENER [Concomitant]
  7. OILS [Concomitant]

REACTIONS (5)
  - CATAPLEXY [None]
  - HYPOAESTHESIA [None]
  - NEUROPATHY PERIPHERAL [None]
  - PARAESTHESIA [None]
  - SLEEP DISORDER [None]
